FAERS Safety Report 5754083-7 (Version None)
Quarter: 2008Q2

REPORT INFORMATION
  Report Type: 
  Country: None (occurrence: None)
  Receive Date: 20080530
  Receipt Date: 20080523
  Transmission Date: 20081010
  Serious: Yes (Hospitalization, Other)
  Sender: FDA-Public Use
  Company Number: PHHY2008CA08750

PATIENT
  Sex: Female

DRUGS (1)
  1. ZOLEDRONIC ACID [Suspect]
     Indication: OSTEOPOROSIS
     Dosage: UNK

REACTIONS (7)
  - CHEST PAIN [None]
  - DIARRHOEA HAEMORRHAGIC [None]
  - GASTRITIS [None]
  - GASTRITIS HAEMORRHAGIC [None]
  - OESOPHAGITIS [None]
  - STOMACH DISCOMFORT [None]
  - VOMITING [None]
